FAERS Safety Report 17550759 (Version 2)
Quarter: 2020Q2

REPORT INFORMATION
  Report Type: Spontaneous
  Country: US (occurrence: US)
  Receive Date: 20200317
  Receipt Date: 20200525
  Transmission Date: 20200713
  Serious: Yes (Other)
  Sender: FDA-Public Use
  Company Number: US-GLAXOSMITHKLINE-US2020GSK047000

PATIENT
  Sex: Female

DRUGS (6)
  1. PREVACID [Suspect]
     Active Substance: LANSOPRAZOLE
     Indication: PRODUCT USED FOR UNKNOWN INDICATION
     Dosage: UNK
     Route: 065
  2. PROTONIX [Suspect]
     Active Substance: PANTOPRAZOLE SODIUM
     Indication: GASTRITIS
     Dosage: 40 MG, BID
     Route: 048
     Dates: start: 2018, end: 2019
  3. PROTONIX [Suspect]
     Active Substance: PANTOPRAZOLE SODIUM
     Dosage: 80 MG
     Route: 042
  4. PREVACID [Suspect]
     Active Substance: LANSOPRAZOLE
     Indication: GASTRITIS
     Dosage: UNK
     Route: 065
     Dates: start: 2010, end: 2017
  5. PRILOSEC OTC [Suspect]
     Active Substance: OMEPRAZOLE MAGNESIUM
     Indication: GASTROOESOPHAGEAL REFLUX DISEASE
     Dosage: UNK
     Route: 065
     Dates: start: 2000, end: 2010
  6. PREVACID [Suspect]
     Active Substance: LANSOPRAZOLE
     Indication: GASTROOESOPHAGEAL REFLUX DISEASE

REACTIONS (17)
  - Adenocarcinoma gastric [Unknown]
  - Gastrectomy [Unknown]
  - Vomiting [Unknown]
  - Large intestinal polypectomy [Unknown]
  - Gastritis [Unknown]
  - Abdominal pain upper [Unknown]
  - Gastrointestinal wall thickening [Unknown]
  - Jejunostomy [Unknown]
  - Abdominal pain [Unknown]
  - Chronic gastritis [Unknown]
  - Gastric neoplasm [Unknown]
  - Large intestine polyp [Unknown]
  - Gastric cancer [Unknown]
  - Gastroenterostomy [Unknown]
  - Gastric bypass [Unknown]
  - Colon cancer [Unknown]
  - Gastric ulcer [Unknown]
